FAERS Safety Report 8213418-6 (Version None)
Quarter: 2012Q1

REPORT INFORMATION
  Report Type: 
  Country: None (occurrence: None)
  Receive Date: 20120315
  Receipt Date: 20120305
  Transmission Date: 20120608
  Serious: Yes (Other)
  Sender: FDA-Public Use
  Company Number: CN-ROCHE-1045604

PATIENT

DRUGS (7)
  1. CYCLOPHOSPHAMIDE [Suspect]
     Indication: DIFFUSE LARGE B-CELL LYMPHOMA
     Dosage: ON DAY 2-5
     Route: 042
  2. MABTHERA [Suspect]
     Dosage: MAINTENANCE THERAPY DURING FIRST YEAR
  3. MABTHERA [Suspect]
     Dosage: MAINTENANCE THERAPY DURING SECOND YEAR
  4. DOXORUBICIN HCL [Suspect]
     Indication: DIFFUSE LARGE B-CELL LYMPHOMA
     Dosage: ON DAY 2-5
     Route: 042
  5. MABTHERA [Suspect]
     Indication: DIFFUSE LARGE B-CELL LYMPHOMA
     Dosage: ON DAY 1
     Route: 042
  6. VINCRISTINE [Suspect]
     Indication: DIFFUSE LARGE B-CELL LYMPHOMA
     Dosage: ON DAY 2-5
     Route: 042
  7. PREDNISONE TAB [Suspect]
     Indication: DIFFUSE LARGE B-CELL LYMPHOMA
     Dosage: ON DAY 2-5
     Route: 048

REACTIONS (8)
  - HEPATIC FUNCTION ABNORMAL [None]
  - HYPERSENSITIVITY [None]
  - NAUSEA [None]
  - INFECTION [None]
  - RENAL FAILURE [None]
  - AGRANULOCYTOSIS [None]
  - VOMITING [None]
  - CARDIOVASCULAR DISORDER [None]
